FAERS Safety Report 5363217-8 (Version None)
Quarter: 2007Q2

REPORT INFORMATION
  Report Type: 
  Country: None (occurrence: None)
  Receive Date: 20070620
  Receipt Date: 20070615
  Transmission Date: 20071010
  Serious: Yes (Hospitalization)
  Sender: FDA-Public Use
  Company Number: PHRM2007FR01654

PATIENT
  Age: 74 Year
  Sex: Female
  Weight: 51 kg

DRUGS (6)
  1. LYTOS [Suspect]
     Route: 048
     Dates: start: 20060216, end: 20070323
  2. TAXOTERE [Concomitant]
     Dates: start: 20060101
  3. CARBOPLATIN [Concomitant]
     Dates: start: 20060101
  4. AVASTIN [Concomitant]
     Dates: start: 20060101
  5. MILTEX [Concomitant]
     Dates: start: 20060101
  6. ZOMETA [Suspect]
     Indication: METASTASES TO BONE
     Route: 042
     Dates: start: 20050105, end: 20060216

REACTIONS (6)
  - OSTEITIS [None]
  - OSTEONECROSIS [None]
  - PAIN IN JAW [None]
  - TOOTH ABSCESS [None]
  - TOOTH EXTRACTION [None]
  - WOUND DEBRIDEMENT [None]
